FAERS Safety Report 12765192 (Version 1)
Quarter: 2016Q3

REPORT INFORMATION
  Report Type: Spontaneous
  Country: US (occurrence: US)
  Receive Date: 20160921
  Receipt Date: 20160921
  Transmission Date: 20161109
  Serious: Yes (Other)
  Sender: FDA-Public Use
  Company Number: US-TEVA-694945ACC

PATIENT
  Sex: Female

DRUGS (3)
  1. PLAN B ONE-STEP [Suspect]
     Active Substance: LEVONORGESTREL
     Route: 064
     Dates: start: 20160329, end: 20160329
  2. PLAN B ONE-STEP [Suspect]
     Active Substance: LEVONORGESTREL
     Route: 064
     Dates: start: 20160428, end: 20160428
  3. PLAN B ONE-STEP [Suspect]
     Active Substance: LEVONORGESTREL
     Indication: POST COITAL CONTRACEPTION
     Route: 064
     Dates: start: 20160317, end: 20160317

REACTIONS (2)
  - Small for dates baby [Not Recovered/Not Resolved]
  - Foetal exposure during pregnancy [Unknown]
